FAERS Safety Report 15728791 (Version 1)
Quarter: 2018Q4

REPORT INFORMATION
  Report Type: Report from Study
  Country: None (occurrence: US)
  Receive Date: 20181217
  Receipt Date: 20181217
  Transmission Date: 20190205
  Serious: Yes (Hospitalization)
  Sender: FDA-Public Use
  Company Number: US-ABBVIE-18P-163-2591169-00

PATIENT
  Sex: Male

DRUGS (2)
  1. VENCLEXTA [Suspect]
     Active Substance: VENETOCLAX
     Indication: HUMAN T-CELL LYMPHOTROPIC VIRUS TYPE I INFECTION
  2. VENCLEXTA [Suspect]
     Active Substance: VENETOCLAX
     Indication: ADULT T-CELL LYMPHOMA/LEUKAEMIA
     Route: 048

REACTIONS (5)
  - Blood sodium decreased [Not Recovered/Not Resolved]
  - Pneumonia [Not Recovered/Not Resolved]
  - Insomnia [Not Recovered/Not Resolved]
  - Asthenia [Not Recovered/Not Resolved]
  - Intentional product use issue [Unknown]
